FAERS Safety Report 4269141-6 (Version None)
Quarter: 2004Q1

REPORT INFORMATION
  Report Type: 
  Country: None (occurrence: None)
  Receive Date: 20040108
  Receipt Date: 20031226
  Transmission Date: 20041129
  Serious: Yes (Hospitalization, Other)
  Sender: FDA-Public Use
  Company Number: HQWYE760419DEC03

PATIENT
  Age: 63 Year
  Sex: Male

DRUGS (7)
  1. AMOXAPINE [Suspect]
     Indication: DEPRESSION
     Dosage: 50 MG
     Route: 048
     Dates: start: 20031113, end: 20031217
  2. SULPIRIDE (SULPIRIDE) [Concomitant]
  3. ETIZOLAM (ETIZOLAM) [Concomitant]
  4. PAXIL [Concomitant]
  5. BROTIZOLAM (BROTIZOLAM) [Concomitant]
  6. TETRAMIDE (MIANSERIN HYDROCHLORIDE) [Concomitant]
  7. TRIHEXYPHENIDYL HCL [Concomitant]

REACTIONS (1)
  - INTERSTITIAL LUNG DISEASE [None]
